FAERS Safety Report 14506043 (Version 1)
Quarter: 2018Q1

REPORT INFORMATION
  Report Type: Spontaneous
  Country: AU (occurrence: AU)
  Receive Date: 20180208
  Receipt Date: 20180208
  Transmission Date: 20180509
  Serious: Yes (Death, Hospitalization, Other)
  Sender: FDA-Public Use
  Company Number: AU-MYLANLABS-2018M1008233

PATIENT
  Age: 75 Year
  Sex: Female

DRUGS (5)
  1. IMMUNOGLOBULIN                     /00025201/ [Suspect]
     Active Substance: HUMAN IMMUNOGLOBULIN G
     Indication: NEUROLOGICAL DECOMPENSATION
     Dosage: DAILY
     Route: 042
  2. METHYLPREDNISOLONE. [Suspect]
     Active Substance: METHYLPREDNISOLONE
     Indication: PRODUCT USED FOR UNKNOWN INDICATION
     Dosage: 1G DAILY
     Route: 042
  3. PEMBROLIZUMAB. [Suspect]
     Active Substance: PEMBROLIZUMAB
     Indication: MESOTHELIOMA
     Dosage: RECEIVED 2 CYCLES
     Route: 065
  4. PREDNISONE. [Suspect]
     Active Substance: PREDNISONE
     Indication: PRODUCT USED FOR UNKNOWN INDICATION
     Dosage: 1MG/KG DAILY
     Route: 065
  5. PREDNISONE. [Suspect]
     Active Substance: PREDNISONE
     Dosage: 1MG/KG DAILY
     Route: 048

REACTIONS (7)
  - Myasthenia gravis crisis [Fatal]
  - Autoimmune hypothyroidism [Unknown]
  - Myasthenia gravis [Fatal]
  - Respiratory failure [Fatal]
  - Pneumonia [Fatal]
  - Hepatitis [Unknown]
  - Neurological decompensation [Unknown]
